FAERS Safety Report 23175864 (Version 1)
Quarter: 2023Q4

REPORT INFORMATION
  Report Type: Spontaneous
  Country: IR (occurrence: IR)
  Receive Date: 20231113
  Receipt Date: 20231113
  Transmission Date: 20240110
  Serious: Yes (Death, Hospitalization, Other)
  Sender: FDA-Public Use
  Company Number: IR-AMGEN-IRNSP2023200965

PATIENT

DRUGS (2)
  1. NEUPOGEN [Suspect]
     Active Substance: FILGRASTIM
     Indication: Feeding intolerance
     Dosage: 4.5 MICROGRAM/KILOGRAM, Q12H
     Route: 065
  2. NEUPOGEN [Suspect]
     Active Substance: FILGRASTIM
     Indication: Off label use

REACTIONS (6)
  - Sepsis neonatal [Fatal]
  - Necrotising enterocolitis neonatal [Fatal]
  - Pulmonary haemorrhage neonatal [Fatal]
  - Meningitis neonatal [Fatal]
  - Unevaluable event [Unknown]
  - Off label use [Unknown]
